FAERS Safety Report 7015720-2 (Version None)
Quarter: 2010Q3

REPORT INFORMATION
  Report Type: 
  Country: None (occurrence: None)
  Receive Date: 20100927
  Receipt Date: 20090820
  Transmission Date: 20110219
  Serious: No
  Sender: FDA-Public Use
  Company Number: US-ASTRAZENECA-2009SE09148

PATIENT
  Age: 74 Year
  Sex: Female
  Weight: 72.6 kg

DRUGS (6)
  1. ARIMIDEX [Suspect]
     Dosage: TEMPORARY STOPPED FOR 3-4 DAYS
     Route: 048
     Dates: start: 20060901
  2. SYNTHROID [Concomitant]
     Indication: HYPOTHYROIDISM
  3. LIPITOR [Concomitant]
     Indication: HYPERCHOLESTEROLAEMIA
  4. BAYER PLUS [Concomitant]
     Indication: ARTHRITIS
  5. EXCEDRIN (MIGRAINE) [Concomitant]
  6. VITAMINS AND SUPPLEMENTS [Concomitant]

REACTIONS (3)
  - ARTHRALGIA [None]
  - INCISION SITE PAIN [None]
  - MYALGIA [None]
